FAERS Safety Report 8309198 (Version 2)
Quarter: 2018Q1

REPORT INFORMATION
  Report Type: Spontaneous
  Country: US (occurrence: US)
  Receive Date: 20111222
  Receipt Date: 20180113
  Transmission Date: 20180509
  Serious: Yes (Hospitalization, Other)
  Sender: FDA-Public Use
  Company Number: US-ASTRAZENECA-2011SE64442

PATIENT
  Age: 61 Year
  Sex: Female
  Weight: 103.4 kg

DRUGS (2)
  1. ARIMIDEX [Suspect]
     Active Substance: ANASTROZOLE
     Indication: BREAST CANCER FEMALE
     Route: 048
     Dates: start: 201007
  2. ARIMIDEX [Suspect]
     Active Substance: ANASTROZOLE
     Indication: BREAST CANCER FEMALE
     Dosage: GENERIC ARIMIDEX
     Route: 048
     Dates: start: 201007, end: 201007

REACTIONS (7)
  - Urticaria [Unknown]
  - Neoplasm malignant [Unknown]
  - Hypertension [Unknown]
  - Drug intolerance [Unknown]
  - Adverse drug reaction [Unknown]
  - Adverse event [Unknown]
  - Rash pruritic [Unknown]
